FAERS Safety Report 6728613-2 (Version None)
Quarter: 2010Q2

REPORT INFORMATION
  Report Type: 
  Country: None (occurrence: None)
  Receive Date: 20100517
  Receipt Date: 20100510
  Transmission Date: 20101027
  Serious: Yes (Other)
  Sender: FDA-Public Use
  Company Number: JP-PFIZER INC-2010060130

PATIENT
  Age: 58 Year
  Sex: Female

DRUGS (4)
  1. FLUCONAZOLE [Suspect]
     Indication: INFECTION PROPHYLAXIS
     Dosage: UNK
  2. PROGRAF [Interacting]
     Indication: PROPHYLAXIS AGAINST GRAFT VERSUS HOST DISEASE
     Dosage: 3 MG, 2X/DAY
     Route: 048
  3. AMIKACIN [Interacting]
     Indication: INFECTION PROPHYLAXIS
  4. ACYCLOVIR SODIUM [Concomitant]
     Indication: INFECTION PROPHYLAXIS

REACTIONS (2)
  - DRUG INTERACTION [None]
  - RENAL IMPAIRMENT [None]
